FAERS Safety Report 7727244 (Version 3)
Quarter: 2014Q3

REPORT INFORMATION
  Report Type: Report from Study
  Country: US (occurrence: US)
  Receive Date: 20101222
  Receipt Date: 20140717
  Transmission Date: 20150326
  Serious: Yes (Hospitalization)
  Sender: FDA-Public Use
  Company Number: US-JNJFOC-20101206594

PATIENT
  Age: 22 Year
  Sex: Female
  Weight: 52.3 kg

DRUGS (12)
  1. SYNTHROID [Concomitant]
     Active Substance: LEVOTHYROXINE SODIUM
  2. EFFEXOR [Concomitant]
     Active Substance: VENLAFAXINE HYDROCHLORIDE
  3. KELP [Concomitant]
     Active Substance: KELP
  4. LAMOTRIGINE. [Concomitant]
     Active Substance: LAMOTRIGINE
  5. ALBUTEROL. [Concomitant]
     Active Substance: ALBUTEROL
  6. CRANBERRY PILL [Concomitant]
  7. ACETAMINOPHEN. [Suspect]
     Active Substance: ACETAMINOPHEN
     Indication: FIBROMYALGIA
     Dosage: 2500 - 3000 MG, DAILY
     Route: 048
  8. VITAMIN D [Concomitant]
     Active Substance: CHOLECALCIFEROL
  9. ACETAMINOPHEN. [Suspect]
     Active Substance: ACETAMINOPHEN
     Indication: FIBROMYALGIA
     Dosage: 500 MG, 5 TO A ^HANDFUL^
     Route: 048
     Dates: start: 201012, end: 201012
  10. ADVAIR HFA [Concomitant]
     Active Substance: FLUTICASONE PROPIONATE\SALMETEROL XINAFOATE
  11. CLONAZEPAM. [Concomitant]
     Active Substance: CLONAZEPAM
  12. TRAMADOL [Concomitant]
     Active Substance: TRAMADOL

REACTIONS (7)
  - Intentional overdose [Recovered/Resolved]
  - Self injurious behaviour [Recovered/Resolved]
  - Abdominal pain [Recovered/Resolved]
  - Blood bilirubin increased [Recovered/Resolved]
  - Vomiting [Recovered/Resolved]
  - Prothrombin time prolonged [Recovered/Resolved]
  - Hepatic enzyme increased [Recovered/Resolved]

NARRATIVE: CASE EVENT DATE: 201012
